FAERS Safety Report 12063176 (Version 1)
Quarter: 2016Q1

REPORT INFORMATION
  Report Type: Spontaneous
  Country: ES (occurrence: ES)
  Receive Date: 20160210
  Receipt Date: 20160210
  Transmission Date: 20160526
  Serious: Yes (Hospitalization)
  Sender: FDA-Public Use
  Company Number: ES-TAKEDA-2016TUS001167

PATIENT
  Age: 16 Year
  Sex: Male
  Weight: 46 kg

DRUGS (3)
  1. ENTYVIO [Suspect]
     Active Substance: VEDOLIZUMAB
     Indication: COLITIS ULCERATIVE
     Dosage: 300 MG, UNK
     Route: 042
     Dates: start: 20151204, end: 20151204
  2. TACROLIMUS. [Concomitant]
     Active Substance: TACROLIMUS
     Dosage: 7 MG, QD
     Route: 048
     Dates: start: 201505
  3. PREDNISONE. [Concomitant]
     Active Substance: PREDNISONE
     Dosage: 40 MG, QD
     Route: 048
     Dates: start: 201507

REACTIONS (3)
  - Cytomegalovirus infection [Recovered/Resolved]
  - Colitis ulcerative [Recovered/Resolved]
  - Off label use [Unknown]

NARRATIVE: CASE EVENT DATE: 20151207
